FAERS Safety Report 8109146-8 (Version None)
Quarter: 2012Q1

REPORT INFORMATION
  Report Type: 
  Country: None (occurrence: None)
  Receive Date: 20120202
  Receipt Date: 20120106
  Transmission Date: 20120608
  Serious: No
  Sender: FDA-Public Use
  Company Number: US-AMGEN-USASP2012001038

PATIENT
  Age: 61 Year
  Sex: Female

DRUGS (1)
  1. ENBREL [Suspect]
     Indication: RHEUMATOID ARTHRITIS
     Dosage: 50 MG, QWK
     Dates: start: 20111208

REACTIONS (9)
  - CHILLS [None]
  - BLOOD KETONE BODY INCREASED [None]
  - URINARY TRACT INFECTION [None]
  - DECREASED APPETITE [None]
  - INFLUENZA [None]
  - ABDOMINAL DISCOMFORT [None]
  - ASTHENIA [None]
  - VOMITING [None]
  - DEHYDRATION [None]
